FAERS Safety Report 9429614 (Version 1)
Quarter: 2013Q3

REPORT INFORMATION
  Report Type: Spontaneous
  Country: US (occurrence: US)
  Receive Date: 20130730
  Receipt Date: 20130730
  Transmission Date: 20140515
  Serious: No
  Sender: FDA-Public Use
  Company Number: US-ABBOTT-13P-163-1067869-00

PATIENT
  Age: 74 Year
  Sex: Female
  Weight: 64.01 kg

DRUGS (8)
  1. NIASPAN (COATED) [Suspect]
     Indication: BLOOD CHOLESTEROL INCREASED
  2. LIPTOR [Suspect]
     Indication: BLOOD CHOLESTEROL INCREASED
     Dates: start: 201212, end: 20130321
  3. NEURONTIN [Concomitant]
     Indication: HERPES ZOSTER
  4. NEURONTIN [Concomitant]
     Indication: PAIN
  5. WELLBUTRIN [Concomitant]
     Indication: PRODUCT USED FOR UNKNOWN INDICATION
  6. ASA [Concomitant]
     Indication: PRODUCT USED FOR UNKNOWN INDICATION
  7. SPIRIVA [Concomitant]
     Indication: PRODUCT USED FOR UNKNOWN INDICATION
     Route: 055
  8. HYDROCODONE 5/325 [Concomitant]
     Indication: PRODUCT USED FOR UNKNOWN INDICATION

REACTIONS (2)
  - Myalgia [Recovering/Resolving]
  - Myalgia [Not Recovered/Not Resolved]
